FAERS Safety Report 6043875-5 (Version None)
Quarter: 2009Q1

REPORT INFORMATION
  Report Type: 
  Country: None (occurrence: None)
  Receive Date: 20090120
  Receipt Date: 20090114
  Transmission Date: 20090719
  Serious: Yes (Hospitalization)
  Sender: FDA-Public Use
  Company Number: DE-BRISTOL-MYERS SQUIBB COMPANY-14398549

PATIENT
  Age: 83 Year
  Sex: Male
  Weight: 64 kg

DRUGS (3)
  1. CETUXIMAB [Suspect]
     Indication: GASTROOESOPHAGEAL CANCER
     Dosage: CETUXIMAB 5MG/ML: INITIAL DOSING OF 400 MG/M2 ON DAY 1.
     Route: 042
     Dates: start: 20080726, end: 20081010
  2. CISPLATIN [Suspect]
     Indication: GASTROOESOPHAGEAL CANCER
     Dosage: GIVENON DAY 1 OF EACH CYCLE
     Route: 042
     Dates: start: 20080726, end: 20081010
  3. CAPECITABINE [Suspect]
     Indication: GASTROOESOPHAGEAL CANCER
     Dosage: GIVEN DAY 1 THOUGH DAY 15
     Route: 048
     Dates: start: 20080726, end: 20080926

REACTIONS (1)
  - ANAEMIA [None]
